FAERS Safety Report 20035118 (Version 1)
Quarter: 2021Q4

REPORT INFORMATION
  Report Type: Spontaneous
  Country: US (occurrence: US)
  Receive Date: 20211104
  Receipt Date: 20211104
  Transmission Date: 20220304
  Serious: No
  Sender: FDA-Public Use
  Company Number: US-ORGANON-O2111USA000269

PATIENT
  Sex: Female

DRUGS (1)
  1. ASMANEX [Suspect]
     Active Substance: MOMETASONE FUROATE
     Indication: Asthma
     Dosage: 1 PUFF 1X A DAY
     Dates: start: 2010, end: 2021

REACTIONS (2)
  - Wrist fracture [Not Recovered/Not Resolved]
  - Product availability issue [Unknown]

NARRATIVE: CASE EVENT DATE: 20210101
